FAERS Safety Report 17071594 (Version 1)
Quarter: 2019Q4

REPORT INFORMATION
  Report Type: Spontaneous
  Country: DE (occurrence: DE)
  Receive Date: 20191125
  Receipt Date: 20191125
  Transmission Date: 20200122
  Serious: Yes (Other)
  Sender: FDA-Public Use
  Company Number: DE-MYLANLABS-2019M1112805

PATIENT
  Age: 77 Year
  Sex: Male

DRUGS (5)
  1. LEVODOPA [Suspect]
     Active Substance: LEVODOPA
     Dosage: TRIAL INCREASE DOSAGE (L-DOPA TEST)
  2. AMANTADINE HYDROCHLORIDE. [Suspect]
     Active Substance: AMANTADINE HYDROCHLORIDE
     Indication: PARKINSON^S DISEASE
     Dosage: 150 MILLIGRAM, BID
  3. LEVODOPA [Suspect]
     Active Substance: LEVODOPA
     Indication: PARKINSON^S DISEASE
     Dosage: GRADUALLY DOSED
  4. PRAMIPEXOLE. [Suspect]
     Active Substance: PRAMIPEXOLE
     Dosage: 0.7 MILLIGRAM, Q8H
  5. PRAMIPEXOLE. [Suspect]
     Active Substance: PRAMIPEXOLE
     Indication: PARKINSON^S DISEASE
     Dosage: 3.15 MILLIGRAM, QD

REACTIONS (3)
  - Orthostatic intolerance [Unknown]
  - Pleurothotonus [Unknown]
  - Camptocormia [Recovering/Resolving]
